FAERS Safety Report 5234342-7 (Version None)
Quarter: 2007Q1

REPORT INFORMATION
  Report Type: 
  Country: None (occurrence: None)
  Receive Date: 20070209
  Receipt Date: 20070206
  Transmission Date: 20070707
  Serious: Yes (Other)
  Sender: FDA-Public Use
  Company Number: IE-ABBOTT-04P-229-0252883-00

PATIENT
  Sex: Male

DRUGS (4)
  1. KLACID [Suspect]
     Indication: HELICOBACTER INFECTION
     Route: 048
     Dates: start: 20031229, end: 20040105
  2. PANTOPRAZOLE SODIUM [Suspect]
     Indication: BACTERIAL INFECTION
     Route: 048
     Dates: start: 20031229, end: 20040105
  3. PANTOPRAZOLE SODIUM [Suspect]
     Route: 048
     Dates: start: 20031212, end: 20040105
  4. AMOXICILLIN TRIHYDRATE [Suspect]
     Indication: BACTERIAL INFECTION
     Route: 048
     Dates: start: 20031229, end: 20040105

REACTIONS (3)
  - DEPRESSION [None]
  - SUICIDAL IDEATION [None]
  - SUICIDE ATTEMPT [None]
